FAERS Safety Report 4685850-9 (Version None)
Quarter: 2005Q2

REPORT INFORMATION
  Report Type: 
  Country: None (occurrence: None)
  Receive Date: 20050606
  Receipt Date: 20050606
  Transmission Date: 20051028
  Serious: Yes (Other)
  Sender: FDA-Public Use
  Company Number: None

PATIENT
  Sex: Female
  Weight: 90.7194 kg

DRUGS (3)
  1. NIX [Suspect]
     Indication: LICE INFESTATION
     Dosage: ALTERNATED, USED APPROX 5 TIMES EVERY 10 DAYS, 3 MONTHS RUNNING
     Dates: start: 20050101, end: 20050415
  2. RID MOUSSE [Suspect]
     Indication: LICE INFESTATION
     Dosage: ALTERNATED, USED APPROX 5 TIMES EVERY 10 DAYS, 3 MONTHS RUNNING
     Dates: start: 20050101, end: 20050415
  3. EQUATE WALMART BRAND (SAME AS RID) [Suspect]
     Indication: LICE INFESTATION
     Dosage: ALTERNATED, USED APPROX 5 TIMES EVERY 10 DAYS, 3 MONTHS RUNNING
     Dates: start: 20050101, end: 20050415

REACTIONS (4)
  - EYE IRRITATION [None]
  - MUSCLE TWITCHING [None]
  - TONGUE DISORDER [None]
  - TONGUE DRY [None]
